FAERS Safety Report 17324517 (Version 1)
Quarter: 2020Q1

REPORT INFORMATION
  Report Type: Spontaneous
  Country: SE (occurrence: SE)
  Receive Date: 20200127
  Receipt Date: 20200127
  Transmission Date: 20200409
  Serious: Yes (Hospitalization)
  Sender: FDA-Public Use
  Company Number: SE-MYLANLABS-2020M1008479

PATIENT
  Age: 30 Year
  Sex: Female

DRUGS (2)
  1. LERGIGAN (PROMETHAZINE HYDROCHLORIDE) [Suspect]
     Active Substance: PROMETHAZINE HYDROCHLORIDE
     Indication: PRODUCT USED FOR UNKNOWN INDICATION
     Dosage: UNK (^MAX 2500MG^)
     Route: 048
     Dates: start: 20180301, end: 20180301
  2. QUETIAPINE. [Suspect]
     Active Substance: QUETIAPINE
     Indication: PRODUCT USED FOR UNKNOWN INDICATION
     Dosage: 500 MILLIGRAM
     Route: 048
     Dates: start: 20180301, end: 20180301

REACTIONS (9)
  - Electrocardiogram QRS complex shortened [Unknown]
  - Intentional self-injury [Unknown]
  - Akathisia [Unknown]
  - Depressed level of consciousness [Unknown]
  - Tachycardia [Unknown]
  - Anxiety [Unknown]
  - Agitation [Unknown]
  - Aggression [Unknown]
  - Intentional overdose [Unknown]

NARRATIVE: CASE EVENT DATE: 20180301
